FAERS Safety Report 6839670-7 (Version None)
Quarter: 2010Q3

REPORT INFORMATION
  Report Type: 
  Country: None (occurrence: None)
  Receive Date: 20100714
  Receipt Date: 20100712
  Transmission Date: 20110219
  Serious: Yes (Life-Threatening, Hospitalization, Other)
  Sender: FDA-Public Use
  Company Number: US-ELI_LILLY_AND_COMPANY-US200908005982

PATIENT
  Sex: Male

DRUGS (16)
  1. BYETTA [Suspect]
     Dosage: 10 UG, 2/D
     Dates: start: 20070101
  2. AVANDAMET [Concomitant]
     Dosage: 2000 MG, 2/D
  3. COREG [Concomitant]
     Dosage: 50 MG, EACH MORNING
  4. COREG [Concomitant]
     Dosage: 25 MG, EACH EVENING
  5. COREG [Concomitant]
     Dosage: 80 MG, DAILY (1/D)
  6. COREG [Concomitant]
     Dosage: 25 MG, 2/D
  7. ALTACE [Concomitant]
     Dosage: 10 MG, 2/D
  8. LASIX [Concomitant]
     Dosage: 40 MG, DAILY (1/D)
  9. LASIX [Concomitant]
     Dosage: 80 MG, UNK
     Route: 042
     Dates: start: 20071103, end: 20071103
  10. CRESTOR [Concomitant]
     Dosage: 20 MG, UNK
  11. LIPITOR [Concomitant]
  12. ASPIRIN [Concomitant]
     Dosage: 81 MG, DAILY (1/D)
  13. AMARYL [Concomitant]
     Dosage: UNK, AS NEEDED
  14. SINGULAIR [Concomitant]
     Dosage: 10 MG, AS NEEDED
  15. PLAVIX [Concomitant]
     Dosage: 75 MG, DAILY (1/D)
  16. FLEXERIL [Concomitant]
     Dosage: 10 MG, AS NEEDED

REACTIONS (13)
  - ATELECTASIS [None]
  - CHOLECYSTITIS [None]
  - CHOLELITHIASIS [None]
  - CONVULSION [None]
  - HYPOVENTILATION [None]
  - ILEUS [None]
  - NEPHROLITHIASIS [None]
  - PANCREATITIS [None]
  - RENAL FAILURE ACUTE [None]
  - RESPIRATORY ACIDOSIS [None]
  - RESPIRATORY FAILURE [None]
  - SEPSIS [None]
  - TREMOR [None]
